FAERS Safety Report 19067576 (Version 4)
Quarter: 2022Q3

REPORT INFORMATION
  Report Type: Report from Study
  Country: JP (occurrence: JP)
  Receive Date: 20210329
  Receipt Date: 20220914
  Transmission Date: 20221026
  Serious: Yes (Death, Life-Threatening, Hospitalization, Other)
  Sender: FDA-Public Use
  Company Number: JP-JNJFOC-A-CH2017-153936

PATIENT
  Age: 24 Year
  Sex: Female
  Weight: 37.7 kg

DRUGS (33)
  1. OPSUMIT [Suspect]
     Active Substance: MACITENTAN
     Indication: Pulmonary arterial hypertension
     Dosage: 10 MG, QD
     Route: 048
     Dates: start: 20160324, end: 20180625
  2. OPSUMIT [Suspect]
     Active Substance: MACITENTAN
     Dosage: 5 MG, QD
     Route: 048
  3. UPTRAVI [Suspect]
     Active Substance: SELEXIPAG
     Indication: Pulmonary arterial hypertension
     Dosage: 0.2 MG, BID
     Route: 048
     Dates: start: 20171229, end: 20180111
  4. UPTRAVI [Suspect]
     Active Substance: SELEXIPAG
     Dosage: 0.4 MG, BID
     Route: 048
     Dates: start: 20180112, end: 20180208
  5. UPTRAVI [Suspect]
     Active Substance: SELEXIPAG
     Dosage: 0.6 MG, BID
     Route: 048
     Dates: start: 20180209, end: 20180214
  6. UPTRAVI [Suspect]
     Active Substance: SELEXIPAG
     Dosage: 0.4 MG, BID
     Route: 048
     Dates: start: 20180215, end: 20180621
  7. ADEMPAS [Suspect]
     Active Substance: RIOCIGUAT
     Indication: Pulmonary arterial hypertension
     Dosage: 4 MG, QD
     Route: 048
     Dates: start: 20170824, end: 20180621
  8. FLUOCINOLONE ACETONIDE [Suspect]
     Active Substance: FLUOCINOLONE ACETONIDE
     Indication: Mitral valve incompetence
     Dosage: 2 MG, QD
     Route: 048
     Dates: start: 20170928, end: 20180621
  9. FLUOCINOLONE ACETONIDE [Suspect]
     Active Substance: FLUOCINOLONE ACETONIDE
     Indication: Cardiac failure
  10. FLUOCINOLONE ACETONIDE [Suspect]
     Active Substance: FLUOCINOLONE ACETONIDE
     Indication: Oedema due to cardiac disease
  11. VENTAVIS [Concomitant]
     Active Substance: ILOPROST
     Indication: Pulmonary arterial hypertension
     Route: 055
     Dates: start: 20170310
  12. VENTAVIS [Concomitant]
     Active Substance: ILOPROST
     Indication: Pulmonary arterial hypertension
  13. BERAPROST SODIUM [Concomitant]
     Active Substance: BERAPROST SODIUM
     Indication: Pulmonary arterial hypertension
     Route: 048
     Dates: start: 20090814
  14. ADCIRCA [Concomitant]
     Active Substance: TADALAFIL
     Indication: Pulmonary arterial hypertension
     Route: 048
     Dates: start: 20110322
  15. TORSEMIDE [Concomitant]
     Active Substance: TORSEMIDE
     Indication: Right ventricular failure
     Route: 048
     Dates: start: 20130829, end: 20160916
  16. SPIRONOLACTONE [Concomitant]
     Active Substance: SPIRONOLACTONE
     Indication: Right ventricular failure
     Route: 048
     Dates: start: 20130926, end: 20180621
  17. SPIRONOLACTONE [Concomitant]
     Active Substance: SPIRONOLACTONE
     Indication: Cardiac failure
  18. IMIDAPRIL [Concomitant]
     Active Substance: IMIDAPRIL
     Indication: Right ventricular failure
     Route: 048
     Dates: start: 20140814
  19. IMIDAPRIL [Concomitant]
     Active Substance: IMIDAPRIL
     Indication: Hypertension
  20. SODIUM FERROUS CITRATE [Concomitant]
     Active Substance: SODIUM FERROUS CITRATE
     Indication: Anaemia
     Route: 048
     Dates: start: 20141113
  21. SODIUM FERROUS CITRATE [Concomitant]
     Active Substance: SODIUM FERROUS CITRATE
     Indication: Anaemia
     Route: 048
     Dates: start: 20141113
  22. SODIUM FERROUS CITRATE [Concomitant]
     Active Substance: SODIUM FERROUS CITRATE
     Route: 048
     Dates: start: 20141113
  23. TEPRENONE [Concomitant]
     Active Substance: TEPRENONE
     Indication: Gastritis
     Route: 048
     Dates: start: 20160902
  24. FAMOTIDINE [Concomitant]
     Active Substance: FAMOTIDINE
     Indication: Gastritis
     Route: 048
     Dates: start: 20160725
  25. FAMOTIDINE [Concomitant]
     Active Substance: FAMOTIDINE
     Route: 048
     Dates: start: 20160925
  26. OXYGEN [Concomitant]
     Active Substance: OXYGEN
     Route: 055
  27. FUROSEMIDE [Concomitant]
     Active Substance: FUROSEMIDE
     Indication: Right ventricular failure
     Route: 048
     Dates: start: 20160917
  28. FUROSEMIDE [Concomitant]
     Active Substance: FUROSEMIDE
     Indication: Cardiac failure
  29. BIO-THREE [Concomitant]
     Active Substance: HERBALS
     Dates: start: 20170622, end: 20180625
  30. VONOPRAZAN FUMARATE [Concomitant]
     Active Substance: VONOPRAZAN FUMARATE
     Indication: Gastritis
     Dosage: 20 MG, QD
     Dates: start: 20180622, end: 20180624
  31. POTASSIUM GLUCONATE [Concomitant]
     Active Substance: POTASSIUM GLUCONATE
     Indication: Hypokalaemia
     Dosage: 9 G, QD
     Dates: start: 20180625, end: 20180625
  32. SAMSCA [Concomitant]
     Active Substance: TOLVAPTAN
     Indication: Right ventricular failure
     Dosage: 3.75 MG, QD
     Route: 048
     Dates: start: 20160924
  33. SAMSCA [Concomitant]
     Active Substance: TOLVAPTAN
     Indication: Cardiac failure

REACTIONS (18)
  - Pulmonary arterial hypertension [Fatal]
  - Pulmonary arterial hypertension [Fatal]
  - Condition aggravated [Fatal]
  - Hypotension [Recovered/Resolved]
  - Renal failure [Not Recovered/Not Resolved]
  - Oedema [Not Recovered/Not Resolved]
  - Ascites [Not Recovered/Not Resolved]
  - Melaena [Unknown]
  - Red blood cell count decreased [Unknown]
  - Haemoglobin decreased [Unknown]
  - White blood cell count decreased [Not Recovered/Not Resolved]
  - Transfusion [Unknown]
  - Haematemesis [Recovering/Resolving]
  - Endoscopy [Unknown]
  - Anuria [Not Recovered/Not Resolved]
  - Diarrhoea [Not Recovered/Not Resolved]
  - Back pain [Recovered/Resolved]
  - Pain in jaw [Recovered/Resolved]

NARRATIVE: CASE EVENT DATE: 20160902
